FAERS Safety Report 9611954 (Version 1)
Quarter: 2013Q4

REPORT INFORMATION
  Report Type: Spontaneous
  Country: DE (occurrence: DE)
  Receive Date: 20131010
  Receipt Date: 20131010
  Transmission Date: 20140711
  Serious: Yes (Other)
  Sender: FDA-Public Use
  Company Number: DE-ASTRAZENECA-2013SE73813

PATIENT
  Age: 58 Year
  Sex: Female

DRUGS (1)
  1. BRILIQUE [Suspect]
     Route: 048
     Dates: start: 201305

REACTIONS (1)
  - Device occlusion [Unknown]
